FAERS Safety Report 15413302 (Version 4)
Quarter: 2018Q4

REPORT INFORMATION
  Report Type: Spontaneous
  Country: US (occurrence: US)
  Receive Date: 20180921
  Receipt Date: 20181121
  Transmission Date: 20190204
  Serious: Yes (Hospitalization, Disabling, Other)
  Sender: FDA-Public Use
  Company Number: US-JNJFOC-20180922392

PATIENT
  Age: 44 Year
  Sex: Male

DRUGS (1)
  1. INVOKAMET [Suspect]
     Active Substance: CANAGLIFLOZIN\METFORMIN HYDROCHLORIDE
     Indication: PRODUCT USED FOR UNKNOWN INDICATION
     Route: 048

REACTIONS (7)
  - Diabetic foot infection [Unknown]
  - Gangrene [Unknown]
  - Neuropathic arthropathy [Unknown]
  - Leg amputation [Unknown]
  - Peripheral ischaemia [Unknown]
  - Osteomyelitis chronic [Unknown]
  - Foot amputation [Unknown]

NARRATIVE: CASE EVENT DATE: 201412
